FAERS Safety Report 21770145 (Version 1)
Quarter: 2022Q4

REPORT INFORMATION
  Report Type: Spontaneous
  Country: US (occurrence: US)
  Receive Date: 20221223
  Receipt Date: 20221223
  Transmission Date: 20230112
  Serious: No
  Sender: FDA-Public Use
  Company Number: US-SA-SAC20221219001312

PATIENT
  Sex: Female

DRUGS (1)
  1. DUPIXENT [Suspect]
     Active Substance: DUPILUMAB
     Dosage: 300 MG
     Route: 058

REACTIONS (6)
  - Eczema [Unknown]
  - Pyrexia [Unknown]
  - Pharyngeal swelling [Unknown]
  - Stress [Unknown]
  - Back disorder [Unknown]
  - Rash [Unknown]

NARRATIVE: CASE EVENT DATE: 20221201
